FAERS Safety Report 5619353-1 (Version None)
Quarter: 2008Q1

REPORT INFORMATION
  Report Type: 
  Country: None (occurrence: None)
  Receive Date: 20080114
  Receipt Date: 20070129
  Transmission Date: 20080703
  Serious: Yes (Other)
  Sender: FDA-Public Use
  Company Number: A03200700793

PATIENT
  Sex: Female

DRUGS (2)
  1. PLAVIX [Suspect]
     Indication: DEEP VEIN THROMBOSIS
     Dosage: 75  MG QD - ORAL
     Route: 048
  2. FELDENE [Suspect]
     Indication: DEEP VEIN THROMBOSIS
     Dosage: 20 MG QD - ORAL
     Route: 048

REACTIONS (4)
  - FATIGUE [None]
  - GASTRITIS [None]
  - GASTROINTESTINAL HAEMORRHAGE [None]
  - HAEMOGLOBIN DECREASED [None]
